FAERS Safety Report 4630277-9 (Version None)
Quarter: 2005Q2

REPORT INFORMATION
  Report Type: 
  Country: None (occurrence: None)
  Receive Date: 20050406
  Receipt Date: 20050322
  Transmission Date: 20051028
  Serious: Yes (Other)
  Sender: FDA-Public Use
  Company Number: CEL-2004-02187-SLO

PATIENT
  Age: 6 Year
  Sex: Male
  Weight: 62 kg

DRUGS (1)
  1. EQUASYM (STRENGTH UNSPECIFIED) (METHYLPHENIDATE) [Suspect]
     Indication: ATTENTION DEFICIT/HYPERACTIVITY DISORDER
     Dosage: 5 MG TWICE DAILY PO
     Route: 048
     Dates: start: 20041112

REACTIONS (1)
  - NEUTROPENIA [None]
